FAERS Safety Report 13758885 (Version 1)
Quarter: 2017Q3

REPORT INFORMATION
  Report Type: Spontaneous
  Country: US (occurrence: US)
  Receive Date: 20170717
  Receipt Date: 20170717
  Transmission Date: 20171127
  Serious: No
  Sender: FDA-Public Use
  Company Number: None

PATIENT
  Age: 75 Year
  Sex: Female
  Weight: 55.8 kg

DRUGS (4)
  1. ACYCLOVIR. [Suspect]
     Active Substance: ACYCLOVIR
     Indication: ORAL HERPES
     Dosage: ?          OTHER STRENGTH:MG;QUANTITY:30 TABLET(S);?3 TIMES A DAY ORAL
     Route: 048
     Dates: start: 20170712, end: 20170714
  2. HYDROCHLOROTHIAZIDE. [Concomitant]
     Active Substance: HYDROCHLOROTHIAZIDE
  3. OCUVITE [Concomitant]
     Active Substance: VITAMINS
  4. MULTIVITAMIN, [Concomitant]

REACTIONS (3)
  - Swelling [None]
  - Epistaxis [None]
  - Somnambulism [None]

NARRATIVE: CASE EVENT DATE: 20170713
